FAERS Safety Report 8570814-5 (Version None)
Quarter: 2012Q3

REPORT INFORMATION
  Report Type: 
  Country: None (occurrence: None)
  Receive Date: 20120806
  Receipt Date: 20120727
  Transmission Date: 20120928
  Serious: Yes (Other)
  Sender: FDA-Public Use
  Company Number: JP-009507513-1204USA02023

PATIENT

DRUGS (18)
  1. RANITIDINE HYDROCHLORIDE [Concomitant]
     Dosage: UNK
     Dates: start: 20120111, end: 20120113
  2. GRANISETRON [Concomitant]
     Dosage: UNK
     Dates: start: 20120301, end: 20120301
  3. DEXAMETHASONE SODIUM PHOSPHATE [Concomitant]
     Dosage: UNK
     Dates: start: 20120301, end: 20120301
  4. RESTAMIN [Concomitant]
     Dosage: UNK
     Dates: start: 20120111, end: 20120113
  5. ALOXI [Suspect]
     Dosage: 0.75 MG, ONCE
     Route: 042
     Dates: start: 20120412, end: 20120412
  6. ALOXI [Suspect]
     Dosage: 0.75 MG, ONCE
     Route: 042
     Dates: start: 20120209, end: 20120211
  7. RANITIDINE HYDROCHLORIDE [Concomitant]
     Dosage: UNK
     Dates: start: 20120412, end: 20120412
  8. RANITIDINE HYDROCHLORIDE [Concomitant]
     Dosage: UNK
     Dates: start: 20120301, end: 20120301
  9. RESTAMIN [Concomitant]
     Dosage: UNK
     Dates: start: 20120209, end: 20120211
  10. FOSAPREPITANT DIMEGLUMINE [Suspect]
     Dosage: 150 MG, ONCE
     Route: 042
     Dates: start: 20120322, end: 20120322
  11. RANITIDINE HYDROCHLORIDE [Concomitant]
     Dosage: UNK
     Dates: start: 20120209, end: 20120211
  12. DEXAMETHASONE SODIUM PHOSPHATE [Concomitant]
     Dosage: UNK
     Dates: start: 20120412, end: 20120412
  13. DEXAMETHASONE SODIUM PHOSPHATE [Concomitant]
     Dosage: UNK
     Dates: start: 20120111, end: 20120113
  14. DEXAMETHASONE SODIUM PHOSPHATE [Concomitant]
     Dosage: UNK
     Dates: start: 20120209, end: 20120211
  15. RESTAMIN [Concomitant]
     Dosage: UNK
     Dates: start: 20120301, end: 20120301
  16. ALOXI [Suspect]
     Dosage: 0.75 MG, QD
     Route: 042
     Dates: start: 20120111, end: 20120113
  17. POLARAMINE [Suspect]
     Dosage: 5 MG, ONCE
     Route: 042
     Dates: start: 20120412, end: 20120412
  18. FOSAPREPITANT DIMEGLUMINE [Suspect]
     Dosage: 150 MG, ONCE
     Route: 042
     Dates: start: 20120412, end: 20120412

REACTIONS (1)
  - ANAPHYLACTIC REACTION [None]
